FAERS Safety Report 20319749 (Version 1)
Quarter: 2022Q1

REPORT INFORMATION
  Report Type: Spontaneous
  Country: US (occurrence: None)
  Receive Date: 20220111
  Receipt Date: 20220111
  Transmission Date: 20220424
  Serious: No
  Sender: FDA-Public Use
  Company Number: 2022A011460

PATIENT
  Sex: Female

DRUGS (1)
  1. SYMBICORT [Suspect]
     Active Substance: BUDESONIDE\FORMOTEROL FUMARATE DIHYDRATE
     Indication: Asthma
     Dosage: 80/4.5 MCG, 2 PUFFS, BID
     Route: 055

REACTIONS (3)
  - Epistaxis [Recovered/Resolved]
  - Dyspnoea [Unknown]
  - Drug ineffective [Unknown]
